FAERS Safety Report 8538083-X (Version None)
Quarter: 2012Q3

REPORT INFORMATION
  Report Type: 
  Country: None (occurrence: None)
  Receive Date: 20120725
  Receipt Date: 20120717
  Transmission Date: 20120928
  Serious: Yes (Hospitalization)
  Sender: FDA-Public Use
  Company Number: US-ABBOTT-12P-163-0957637-00

PATIENT
  Sex: Female

DRUGS (2)
  1. FERROUS SULFATE TAB [Concomitant]
     Indication: UTERINE LEIOMYOMA
  2. LUPRON DEPOT [Suspect]
     Indication: UTERINE LEIOMYOMA
     Route: 030
     Dates: start: 20120209, end: 20120209

REACTIONS (7)
  - VISION BLURRED [None]
  - DIABETES MELLITUS [None]
  - HOT FLUSH [None]
  - POLLAKIURIA [None]
  - BLOOD GLUCOSE INCREASED [None]
  - DYSGEUSIA [None]
  - NIGHT SWEATS [None]
